FAERS Safety Report 23154870 (Version 1)
Quarter: 2023Q4

REPORT INFORMATION
  Report Type: Report from Study
  Country: JP (occurrence: JP)
  Receive Date: 20231107
  Receipt Date: 20231107
  Transmission Date: 20240110
  Serious: Yes (Death)
  Sender: FDA-Public Use
  Company Number: JP-Merck Healthcare KGaA-2023485980

PATIENT
  Age: 78 Year
  Sex: Male

DRUGS (1)
  1. TEPMETKO [Suspect]
     Active Substance: TEPOTINIB HYDROCHLORIDE
     Indication: Lung adenocarcinoma stage IV
     Route: 048

REACTIONS (3)
  - Death [Fatal]
  - Pyrexia [Recovered/Resolved]
  - Hyponatraemia [Recovered/Resolved]
